FAERS Safety Report 8058409-3 (Version None)
Quarter: 2012Q1

REPORT INFORMATION
  Report Type: 
  Country: None (occurrence: None)
  Receive Date: 20120112
  Receipt Date: 20111229
  Transmission Date: 20120608
  Serious: Yes (Death)
  Sender: FDA-Public Use
  Company Number: 1000026911

PATIENT
  Age: 35 Year
  Sex: Female

DRUGS (5)
  1. ANTIHISTAMINES (ANTIHISTAMINES) [Suspect]
  2. CITALOPRAM HYDROBROMIDE [Suspect]
  3. HYDROCODONE BITARTRATE AND ACETAMINOPHEN [Suspect]
  4. PROPOXYPHENE HCL [Suspect]
  5. ZOLPIDEM [Suspect]

REACTIONS (3)
  - COMPLETED SUICIDE [None]
  - RESPIRATORY ARREST [None]
  - CARDIAC ARREST [None]
